FAERS Safety Report 8611172-7 (Version None)
Quarter: 2012Q3

REPORT INFORMATION
  Report Type: 
  Country: None (occurrence: None)
  Receive Date: 20120822
  Receipt Date: 20120813
  Transmission Date: 20120928
  Serious: Yes (Death, Hospitalization)
  Sender: FDA-Public Use
  Company Number: US-AMGEN-US317881

PATIENT
  Age: 74 Year
  Sex: Male

DRUGS (7)
  1. VECTIBIX [Suspect]
     Indication: SQUAMOUS CELL CARCINOMA
     Dosage: UNK
     Route: 042
     Dates: start: 20080922, end: 20081013
  2. DOCETAXEL [Concomitant]
     Indication: SQUAMOUS CELL CARCINOMA
     Dosage: 128 MG, UNK
     Route: 042
     Dates: start: 20080922, end: 20081013
  3. COUMADIN [Concomitant]
     Dosage: UNK
     Dates: end: 20080924
  4. NEULASTA [Concomitant]
     Dosage: 6 MG, UNK
     Route: 058
  5. ZOLEDRONIC ACID [Concomitant]
     Indication: SQUAMOUS CELL CARCINOMA
     Dosage: 4 MG, UNK
     Route: 042
     Dates: start: 20080912, end: 20081013
  6. CISPLATIN [Concomitant]
     Indication: SQUAMOUS CELL CARCINOMA
     Dosage: 128 MG, UNK
     Route: 042
     Dates: start: 20080922, end: 20081013
  7. TAMSULOSIN HCL [Concomitant]

REACTIONS (9)
  - RENAL FAILURE ACUTE [None]
  - NEUTROPENIA [None]
  - DEHYDRATION [None]
  - HAEMOPTYSIS [None]
  - MUSCULOSKELETAL CHEST PAIN [None]
  - HYPOTENSION [None]
  - ABDOMINAL PAIN [None]
  - INTERNATIONAL NORMALISED RATIO INCREASED [None]
  - BLOOD CREATININE INCREASED [None]
